FAERS Safety Report 24962041 (Version 2)
Quarter: 2025Q3

REPORT INFORMATION
  Report Type: Spontaneous
  Country: US (occurrence: US)
  Receive Date: 20250212
  Receipt Date: 20250810
  Transmission Date: 20251020
  Serious: No
  Sender: ALEXION PHARMACEUTICALS
  Company Number: US-AstraZeneca-CH-00804793AP

PATIENT
  Age: 50 Year
  Sex: Female

DRUGS (1)
  1. TEZSPIRE [Suspect]
     Active Substance: TEZEPELUMAB-EKKO
     Route: 065

REACTIONS (8)
  - Vision blurred [Unknown]
  - Product dose omission issue [Unknown]
  - Needle issue [Unknown]
  - Pain [Unknown]
  - Decreased appetite [Unknown]
  - Product storage error [Unknown]
  - Dry eye [Unknown]
  - Device delivery system issue [Unknown]

NARRATIVE: CASE EVENT DATE: 20250210
